FAERS Safety Report 9686351 (Version 1)
Quarter: 2013Q4

REPORT INFORMATION
  Report Type: Spontaneous
  Country: NL (occurrence: None)
  Receive Date: 20131108
  Receipt Date: 20131108
  Transmission Date: 20140711
  Serious: Yes (Hospitalization)
  Sender: FDA-Public Use
  Company Number: AUR-APL-2013-09374

PATIENT
  Age: 71 Year
  Sex: Male
  Weight: 112 kg

DRUGS (12)
  1. PANTOPRAZOLE [Suspect]
     Indication: GASTROINTESTINAL ANGIODYSPLASIA
     Dosage: 80 MG (40 MG, 2 IN 1 D), ORAL
     Route: 048
     Dates: start: 2009, end: 20131004
  2. BUMETANIDE [Suspect]
     Indication: CARDIAC FAILURE
     Route: 048
     Dates: start: 2012
  3. TAMSULOSIN HYDROCHLORIDE [Concomitant]
  4. ZOLPIDEM [Concomitant]
  5. INSPRA (MONTELUKAST SODIUM) [Concomitant]
  6. LISINOPRIL [Concomitant]
  7. ALLOPURINOL [Concomitant]
  8. BISACODYL [Concomitant]
  9. METOPROLOL [Concomitant]
  10. PANADOL (PARACETAMOL) [Concomitant]
  11. SIMVASTATINE (SIMVASTATIN) [Concomitant]
  12. ACENOCOUMAROL (ACENOCOUMAROL) [Concomitant]

REACTIONS (4)
  - Hypocalcaemia [None]
  - Convulsion [None]
  - Nosocomial infection [None]
  - Hypomagnesaemia [None]
